FAERS Safety Report 6918108-5 (Version None)
Quarter: 2010Q3

REPORT INFORMATION
  Report Type: 
  Country: None (occurrence: None)
  Receive Date: 20100810
  Receipt Date: 20100803
  Transmission Date: 20110219
  Serious: Yes (Death)
  Sender: FDA-Public Use
  Company Number: DE-GILEAD-E2B_00000798

PATIENT
  Sex: Female

DRUGS (2)
  1. AMBRISENTAN [Suspect]
     Indication: PULMONARY ARTERIAL HYPERTENSION
     Dosage: 5MG PER DAY
     Route: 048
     Dates: start: 20090501, end: 20100201
  2. AMBRISENTAN [Suspect]
     Dates: start: 20100501

REACTIONS (1)
  - DEATH [None]
